FAERS Safety Report 9740694 (Version 3)
Quarter: 2015Q4

REPORT INFORMATION
  Report Type: Spontaneous
  Country: US (occurrence: US)
  Receive Date: 20131209
  Receipt Date: 20151001
  Transmission Date: 20160305
  Serious: Yes (Other)
  Sender: FDA-Public Use
  Company Number: US-PFIZER INC-2013347311

PATIENT
  Age: 76 Year
  Sex: Female

DRUGS (9)
  1. GABAPENTIN. [Suspect]
     Active Substance: GABAPENTIN
     Indication: NEUROPATHY PERIPHERAL
     Dosage: UNK
  2. LYRICA [Suspect]
     Active Substance: PREGABALIN
     Indication: NEUROPATHY PERIPHERAL
     Dosage: UNK
     Route: 048
     Dates: start: 2013, end: 2013
  3. CYMBALTA [Suspect]
     Active Substance: DULOXETINE HYDROCHLORIDE
     Indication: NEURALGIA
     Dosage: UNK
  4. XANAX [Concomitant]
     Active Substance: ALPRAZOLAM
     Dosage: 2.5 MG, 2X/DAY
  5. LYRICA [Suspect]
     Active Substance: PREGABALIN
     Indication: NERVOUS SYSTEM DISORDER
     Dosage: 75 MG, 2X/DAY
     Route: 048
  6. LABETALOL [Concomitant]
     Active Substance: LABETALOL\LABETALOL HYDROCHLORIDE
     Indication: HYPERTENSION
     Dosage: UNK
  7. LYRICA [Suspect]
     Active Substance: PREGABALIN
     Indication: NEURALGIA
  8. GABAPENTIN. [Suspect]
     Active Substance: GABAPENTIN
     Indication: NEURALGIA
  9. ALLOPURINOL. [Concomitant]
     Active Substance: ALLOPURINOL
     Indication: BLOOD URIC ACID ABNORMAL
     Dosage: UNK

REACTIONS (15)
  - Product use issue [Unknown]
  - Fall [Unknown]
  - Suicidal ideation [Recovered/Resolved]
  - Intervertebral disc protrusion [Unknown]
  - Post procedural complication [Unknown]
  - Drug resistance [Unknown]
  - Nerve injury [Unknown]
  - Depressed mood [Recovered/Resolved]
  - Local swelling [Recovered/Resolved]
  - Muscle disorder [Unknown]
  - Drug ineffective [Recovered/Resolved]
  - Pain [Unknown]
  - Abnormal dreams [Unknown]
  - Scar [Unknown]
  - Pain in extremity [Unknown]

NARRATIVE: CASE EVENT DATE: 2013
